FAERS Safety Report 24042306 (Version 1)
Quarter: 2024Q3

REPORT INFORMATION
  Report Type: Spontaneous
  Country: GB (occurrence: GB)
  Receive Date: 20240702
  Receipt Date: 20240702
  Transmission Date: 20241017
  Serious: Yes (Other)
  Sender: SANDOZ
  Company Number: GB-MHRA-MED-202406141107368500-PTGCN

PATIENT
  Age: 33 Year
  Sex: Male
  Weight: 53 kg

DRUGS (1)
  1. OLANZAPINE [Suspect]
     Active Substance: OLANZAPINE
     Indication: Schizophrenia
     Route: 065
     Dates: start: 20240604, end: 20240604

REACTIONS (3)
  - Post-injection delirium sedation syndrome [Recovered/Resolved]
  - Thirst [Recovered/Resolved]
  - Salivary hypersecretion [Recovered/Resolved]

NARRATIVE: CASE EVENT DATE: 20240604
